FAERS Safety Report 23343048 (Version 1)
Quarter: 2023Q4

REPORT INFORMATION
  Report Type: Spontaneous
  Country: US (occurrence: None)
  Receive Date: 20231226
  Receipt Date: 20231226
  Transmission Date: 20240109
  Serious: Yes (Hospitalization)
  Sender: FDA-Public Use
  Company Number: None

PATIENT
  Age: 55 Year
  Sex: Male
  Weight: 65 kg

DRUGS (2)
  1. WARFARIN SODIUM [Suspect]
     Active Substance: WARFARIN SODIUM
     Dates: start: 20231010, end: 20231016
  2. FLUCONAZOLE [Suspect]
     Active Substance: FLUCONAZOLE
     Dosage: 400 MG EVERY DAY PO?
     Route: 048
     Dates: start: 20231009, end: 20231016

REACTIONS (4)
  - Epistaxis [None]
  - Haemoptysis [None]
  - Sinus congestion [None]
  - International normalised ratio increased [None]

NARRATIVE: CASE EVENT DATE: 20231016
